FAERS Safety Report 7608232-6 (Version None)
Quarter: 2011Q3

REPORT INFORMATION
  Report Type: 
  Country: None (occurrence: None)
  Receive Date: 20110714
  Receipt Date: 20110629
  Transmission Date: 20111222
  Serious: No
  Sender: FDA-Public Use
  Company Number: US-B.I. PHARMACEUTICALS,INC./RIDGEFIELD-2011-BP-16669BP

PATIENT
  Sex: Male

DRUGS (2)
  1. COUMADIN [Concomitant]
     Route: 048
  2. PRADAXA [Suspect]
     Dosage: 300 MG
     Route: 048
     Dates: start: 20110426, end: 20110430

REACTIONS (2)
  - CHEST PAIN [None]
  - ABDOMINAL PAIN UPPER [None]
